FAERS Safety Report 23670216 (Version 1)
Quarter: 2024Q1

REPORT INFORMATION
  Report Type: Spontaneous
  Country: IR (occurrence: IR)
  Receive Date: 20240325
  Receipt Date: 20240325
  Transmission Date: 20240410
  Serious: Yes (Hospitalization, Other)
  Sender: FDA-Public Use
  Company Number: IR-SUN PHARMACEUTICAL INDUSTRIES LTD-2024R1-437671

PATIENT
  Age: 34 Year
  Sex: Female

DRUGS (2)
  1. HYDROXYCHLOROQUINE [Suspect]
     Active Substance: HYDROXYCHLOROQUINE
     Indication: Sjogren^s syndrome
     Dosage: 40 HYDROXYCHLOROQUINE (HCQ) TABLETS (200 MG EACH)
     Route: 065
  2. AZATHIOPRINE [Suspect]
     Active Substance: AZATHIOPRINE
     Indication: Sjogren^s syndrome
     Dosage: 60 AZATHIOPRINE TABLETS (50 MG EACH).
     Route: 065

REACTIONS (10)
  - Overdose [Unknown]
  - Nausea [Unknown]
  - Hypotension [Unknown]
  - Confusional state [Unknown]
  - Somnolence [Unknown]
  - Muscular weakness [Unknown]
  - Hypokalaemia [Unknown]
  - Electrocardiogram T wave amplitude decreased [Recovering/Resolving]
  - Electrocardiogram QT prolonged [Unknown]
  - Hypercalcaemia [Unknown]
